FAERS Safety Report 9631515 (Version 1)
Quarter: 2013Q4

REPORT INFORMATION
  Report Type: Spontaneous
  Country: US (occurrence: US)
  Receive Date: 20131018
  Receipt Date: 20131018
  Transmission Date: 20140711
  Serious: No
  Sender: FDA-Public Use
  Company Number: US-PFIZER INC-2013295599

PATIENT
  Age: 59 Year
  Sex: Female

DRUGS (3)
  1. MORPHINE SULFATE [Suspect]
     Indication: PAIN
     Dosage: 15 MG, (EVERY SIX)
     Dates: end: 20120723
  2. MORPHINE SULFATE [Suspect]
     Indication: PAIN
     Dosage: 30 MG, 2X/DAY EVERY 12 HOURS
     Dates: end: 20120723
  3. ULTRAM [Suspect]
     Indication: PAIN
     Dosage: 50 MG, 2X/DAY
     Dates: end: 20120723

REACTIONS (1)
  - Drug ineffective [Unknown]
